FAERS Safety Report 7812382-9 (Version None)
Quarter: 2011Q4

REPORT INFORMATION
  Report Type: 
  Country: None (occurrence: None)
  Receive Date: 20111013
  Receipt Date: 20111011
  Transmission Date: 20120403
  Serious: Yes (Hospitalization)
  Sender: FDA-Public Use
  Company Number: DE-GLAXOSMITHKLINE-D0072986A

PATIENT
  Age: 28 Year
  Sex: Male

DRUGS (3)
  1. KEPPRA [Concomitant]
     Dosage: 1500MG TWICE PER DAY
     Route: 065
  2. TROBALT [Suspect]
     Dosage: 300MG TWICE PER DAY
     Route: 048
     Dates: start: 20110101, end: 20111008
  3. OXCARBAZEPINE [Concomitant]
     Dosage: 600MG TWICE PER DAY
     Route: 048

REACTIONS (12)
  - HYPOXIA [None]
  - CARDIOVERSION [None]
  - MECHANICAL VENTILATION [None]
  - MUSCLE SPASMS [None]
  - PYREXIA [None]
  - ELECTROCARDIOGRAM QT PROLONGED [None]
  - PARTIAL SEIZURES [None]
  - CYANOSIS [None]
  - VENTRICULAR FIBRILLATION [None]
  - CARDIAC ARREST [None]
  - JOINT HYPEREXTENSION [None]
  - WITHDRAWAL SYNDROME [None]
